FAERS Safety Report 14562758 (Version 1)
Quarter: 2018Q1

REPORT INFORMATION
  Report Type: Spontaneous
  Country: US (occurrence: US)
  Receive Date: 20180222
  Receipt Date: 20180222
  Transmission Date: 20180509
  Serious: Yes (Hospitalization)
  Sender: FDA-Public Use
  Company Number: US-UPSHER-SMITH LABORATORIES, LLC-2018USL00056

PATIENT
  Age: 61 Year
  Sex: Female
  Weight: 113.38 kg

DRUGS (3)
  1. JANTOVEN [Suspect]
     Active Substance: WARFARIN SODIUM
     Indication: THROMBOSIS
     Dosage: 7.5 MG, 1X/DAY
     Route: 048
     Dates: start: 201708, end: 20170906
  2. LOVENOX [Suspect]
     Active Substance: ENOXAPARIN SODIUM
     Dosage: UNK
     Dates: start: 201708, end: 201709
  3. LYRICA [Concomitant]
     Active Substance: PREGABALIN

REACTIONS (1)
  - Injection site haematoma [Recovering/Resolving]

NARRATIVE: CASE EVENT DATE: 20170906
